FAERS Safety Report 5643263-7 (Version None)
Quarter: 2008Q1

REPORT INFORMATION
  Report Type: 
  Country: None (occurrence: None)
  Receive Date: 20080228
  Receipt Date: 20080220
  Transmission Date: 20080703
  Serious: Yes (Other)
  Sender: FDA-Public Use
  Company Number: US-WYE-H02708908

PATIENT
  Sex: Male

DRUGS (1)
  1. ADVIL COLD AND SINUS [Suspect]
     Indication: SINUS DISORDER
     Dosage: 3 CAPLETS EVERY THREE HOURS
     Route: 048

REACTIONS (2)
  - DRUG DEPENDENCE [None]
  - OVERDOSE [None]
